FAERS Safety Report 9537904 (Version 3)
Quarter: 2014Q3

REPORT INFORMATION
  Report Type: Report from Study
  Country: US (occurrence: US)
  Receive Date: 20130919
  Receipt Date: 20140807
  Transmission Date: 20150326
  Serious: Yes (Hospitalization)
  Sender: FDA-Public Use
  Company Number: PHHO2013US008473

PATIENT
  Age: 79 Year
  Sex: Female
  Weight: 57.14 kg

DRUGS (7)
  1. BLINDED FCC H5N1 TURKEY [Suspect]
     Active Substance: INFLUENZA VIRUS VACCINE
     Indication: IMMUNISATION
     Route: 030
     Dates: start: 20130214, end: 20130214
  2. BLINDED FCC H5N1 TURKEY [Suspect]
     Active Substance: INFLUENZA VIRUS VACCINE
     Route: 030
     Dates: start: 20130307, end: 20130307
  3. BLINDED FCC H5N1 TURKEY [Suspect]
     Active Substance: INFLUENZA VIRUS VACCINE
     Route: 030
     Dates: start: 20130307, end: 20130307
  4. METOPROLOL [Suspect]
     Active Substance: METOPROLOL
     Indication: HYPERTENSION
     Dosage: 50 MG, QD
     Route: 048
     Dates: end: 20130612
  5. BLINDED FCC H5N1 TURKEY [Suspect]
     Active Substance: INFLUENZA VIRUS VACCINE
     Indication: IMMUNISATION
     Route: 030
     Dates: start: 20130214, end: 20130214
  6. HYDROCHLOROTHIAZIDE. [Concomitant]
     Active Substance: HYDROCHLOROTHIAZIDE
     Indication: HYPERTENSION
     Dosage: 12.5 MG, QD
     Route: 048
  7. SERTRALINE [Concomitant]
     Active Substance: SERTRALINE HYDROCHLORIDE
     Dosage: 50 MG, QD
     Dates: start: 20130501

REACTIONS (1)
  - Dizziness [Recovered/Resolved]

NARRATIVE: CASE EVENT DATE: 20130612
